FAERS Safety Report 23408586 (Version 2)
Quarter: 2024Q1

REPORT INFORMATION
  Report Type: Spontaneous
  Country: GB (occurrence: GB)
  Receive Date: 20240117
  Receipt Date: 20240221
  Transmission Date: 20240410
  Serious: Yes (Other)
  Sender: FDA-Public Use
  Company Number: GB-AUROBINDO-AUR-APL-2024-001781

PATIENT
  Age: 73 Year
  Sex: Male
  Weight: 42.18 kg

DRUGS (2)
  1. ONDANSETRON [Suspect]
     Active Substance: ONDANSETRON
     Indication: Bile acid malabsorption
     Dosage: 4 MILLIGRAM, ONCE A DAY
     Route: 048
     Dates: start: 202311, end: 20231128
  2. ONDANSETRON [Suspect]
     Active Substance: ONDANSETRON
     Dosage: 4 MILLIGRAM, ONCE A DAY
     Route: 048
     Dates: start: 2023, end: 20231217

REACTIONS (5)
  - Blindness transient [Recovered/Resolved]
  - Constipation [Recovered/Resolved]
  - Product administration error [Recovered/Resolved]
  - Product prescribing issue [Recovered/Resolved]
  - Wrong technique in product usage process [Recovered/Resolved]

NARRATIVE: CASE EVENT DATE: 20231101
